FAERS Safety Report 10235546 (Version 1)
Quarter: 2014Q1

REPORT INFORMATION
  Report Type: Spontaneous
  Country: US (occurrence: None)
  Receive Date: 20140306
  Receipt Date: 20140306
  Transmission Date: 20141002
  Serious: Yes (Other)
  Sender: FDA-Public Use
  Company Number: 163-21880-13010870

PATIENT
  Age: 58 Year
  Sex: Female
  Weight: 49.9 kg

DRUGS (17)
  1. REVLIMID (LENALIDOMIDE) (5 MILLIGRAM, CAPSULES) [Suspect]
     Indication: PLASMA CELL MYELOMA
     Route: 048
     Dates: start: 20120105
  2. ZOMETA (ZOLEDRONIC ACID) (UNKNOWN) [Suspect]
     Indication: METASTASES TO BONE
     Dosage: UNK
     Dates: start: 20120727
  3. PNEUMOVAX [Suspect]
     Indication: PROPHYLAXIS
     Dosage: UNK
  4. ACYCLOVIR (UNKNOWN) [Concomitant]
  5. BETA CAROTENE (UNKNOWN) [Concomitant]
  6. FLAXSEED OIL (LINSEED OIL) (UNKNOWN) [Concomitant]
  7. ACIDOPHILUS (LACTOBACILLUS ACIDOPHILUS) (UNKOWN) [Concomitant]
  8. BACTRIM DS (UNKNOWN) [Concomitant]
  9. ESTRIOL (UNKNOWN) [Concomitant]
  10. PROMETRIUM (PROGESTERONE) (UNKNOWN) [Concomitant]
  11. ARMOUR THYROID (UNKNOWN) [Concomitant]
  12. MAGNESIUM (UNKNOWN) [Concomitant]
  13. CALCIUM WITH VITAMIN D (UNKNOWN) [Concomitant]
  14. VITAMIN B COMPLEX (B-KOMPLEX ^LECIVA^) (UNKNOWN) [Concomitant]
  15. VITAMIN C (ASCORBIC ACID) (UNKNOWN) [Concomitant]
  16. VITAMIN E (TOCOPHEROL) (UNKNOWN) [Concomitant]
  17. EVAMIST (ESTRADIOL) (UNKNOWN) [Concomitant]

REACTIONS (8)
  - Nasopharyngitis [None]
  - Peripheral coldness [None]
  - Bone pain [None]
  - Back pain [None]
  - Arthralgia [None]
  - Rash [None]
  - White blood cell count decreased [None]
  - Heart rate increased [None]
